FAERS Safety Report 7397246-X (Version None)
Quarter: 2011Q2

REPORT INFORMATION
  Report Type: 
  Country: None (occurrence: None)
  Receive Date: 20110406
  Receipt Date: 20110210
  Transmission Date: 20111010
  Serious: Yes (Hospitalization, Other)
  Sender: FDA-Public Use
  Company Number: US-BAYER-2010-005916

PATIENT
  Sex: Male

DRUGS (20)
  1. TRASYLOL [Suspect]
     Indication: CARDIAC PACEMAKER REMOVAL
  2. AMIODARONE HCL [Concomitant]
  3. ASPIRIN [Concomitant]
  4. HEPARIN [Concomitant]
     Dosage: UNK
     Dates: start: 20041127
  5. TRASYLOL [Suspect]
     Indication: VENTRICULAR ASSIST DEVICE INSERTION
  6. FRESH FROZEN PLASMA [Concomitant]
     Dosage: 4 UNITS
  7. RED BLOOD CELLS [Concomitant]
     Dosage: 1 UNIT
  8. POTASSIUM [Concomitant]
  9. ZOLOFT [Concomitant]
  10. LEVOPHED [Concomitant]
     Dosage: UNK
     Dates: start: 20041127
  11. NOREPINEPHRINE BITARTRATE [Concomitant]
     Dosage: UNK
     Dates: start: 20041127
  12. NORVASC [Concomitant]
  13. TRASYLOL [Suspect]
     Indication: IMPLANTABLE DEFIBRILLATOR INSERTION
  14. PLATELETS [Concomitant]
     Dosage: 1 UNIT
  15. TACROLIMUS [Concomitant]
     Indication: IMMUNOSUPPRESSION
  16. TRASYLOL [Suspect]
     Indication: HEART TRANSPLANT
     Dosage: UNK
     Route: 042
     Dates: start: 20041127, end: 20041127
  17. METOPROLOL [Concomitant]
  18. GENTAMICIN [Concomitant]
  19. PROTAMINE SULFATE [Concomitant]
     Dosage: UNK
     Dates: start: 20041127
  20. VASOPRESSIN [Concomitant]
     Dosage: UNK
     Dates: start: 20041127

REACTIONS (9)
  - RENAL FAILURE [None]
  - STRESS [None]
  - INJURY [None]
  - RENAL INJURY [None]
  - ANXIETY [None]
  - EMOTIONAL DISORDER [None]
  - RENAL IMPAIRMENT [None]
  - PAIN [None]
  - FEAR [None]
